FAERS Safety Report 5664415-6 (Version None)
Quarter: 2008Q1

REPORT INFORMATION
  Report Type: 
  Country: None (occurrence: None)
  Receive Date: 20080314
  Receipt Date: 20080229
  Transmission Date: 20080703
  Serious: Yes (Other)
  Sender: FDA-Public Use
  Company Number: TR-AMGEN-US199327

PATIENT
  Age: 65 Year
  Sex: Female

DRUGS (3)
  1. ENBREL [Suspect]
     Indication: PSORIATIC ARTHROPATHY
     Route: 058
     Dates: start: 20040401, end: 20041101
  2. PREDNISOLONE [Concomitant]
     Dosage: ^5-10 MG^
     Route: 065
  3. METHOTREXATE [Concomitant]
     Route: 048

REACTIONS (1)
  - MESOTHELIOMA MALIGNANT [None]
